FAERS Safety Report 14010228 (Version 1)
Quarter: 2017Q3

REPORT INFORMATION
  Report Type: Spontaneous
  Country: US (occurrence: US)
  Receive Date: 20170926
  Receipt Date: 20170926
  Transmission Date: 20171128
  Serious: No
  Sender: FDA-Public Use
  Company Number: US-009507513-1709USA003105

PATIENT
  Sex: Female
  Weight: 54.42 kg

DRUGS (1)
  1. IMPLANON [Suspect]
     Active Substance: ETONOGESTREL
     Indication: CONTRACEPTION
     Dosage: 1 LEFT ARM IMPLANT, FREQUENCY: THREE YEARS
     Route: 059

REACTIONS (4)
  - Muscle spasms [Unknown]
  - Increased appetite [Unknown]
  - Breast feeding [Unknown]
  - Lactation disorder [Unknown]
